FAERS Safety Report 7994422-X (Version None)
Quarter: 2011Q4

REPORT INFORMATION
  Report Type: 
  Country: None (occurrence: None)
  Receive Date: 20111220
  Receipt Date: 20111208
  Transmission Date: 20120403
  Serious: Yes (Hospitalization)
  Sender: FDA-Public Use
  Company Number: US-JNJFOC-20111208130

PATIENT
  Sex: Female
  Weight: 90.72 kg

DRUGS (3)
  1. REMICADE [Suspect]
     Indication: PSORIATIC ARTHROPATHY
     Route: 042
     Dates: start: 20060101, end: 20110826
  2. BENICAR [Concomitant]
     Indication: HYPERTENSION
     Dosage: 320MG/12.5MG
     Route: 048
     Dates: start: 20090101
  3. SYNTHROID [Concomitant]

REACTIONS (3)
  - KNEE ARTHROPLASTY [None]
  - TRANSIENT ISCHAEMIC ATTACK [None]
  - HYPOTHYROIDISM [None]
